FAERS Safety Report 18024185 (Version 1)
Quarter: 2020Q3

REPORT INFORMATION
  Report Type: Spontaneous
  Country: US (occurrence: US)
  Receive Date: 20200714
  Receipt Date: 20200714
  Transmission Date: 20201103
  Serious: Yes (Disabling, Other)
  Sender: FDA-Public Use
  Company Number: None

PATIENT
  Age: 47 Year
  Sex: Male
  Weight: 98.6 kg

DRUGS (11)
  1. HEPARIN [Concomitant]
     Active Substance: HEPARIN SODIUM
     Dates: start: 20200705, end: 20200714
  2. ASPIRIN 81 MG [Concomitant]
     Active Substance: ASPIRIN
     Dates: start: 20200630, end: 20200714
  3. VITAMIN D3 2000 UNITS [Concomitant]
     Dates: start: 20200630, end: 20200714
  4. REMDESIVIR. [Suspect]
     Active Substance: REMDESIVIR
     Indication: CORONAVIRUS INFECTION
     Route: 041
     Dates: start: 20200702, end: 20200712
  5. ALBUTEROL INHALER [Concomitant]
     Active Substance: ALBUTEROL
     Dates: start: 20200629, end: 20200713
  6. ROCURONIUM [Concomitant]
     Active Substance: ROCURONIUM BROMIDE
     Dates: start: 20200711, end: 20200714
  7. DEXAMETHASONE 6 MG [Concomitant]
     Dates: start: 20200630, end: 20200708
  8. FAMOTIDINE 20 MG [Concomitant]
     Active Substance: FAMOTIDINE
     Dates: start: 20200630, end: 20200709
  9. VANCOMYCIN [Concomitant]
     Active Substance: VANCOMYCIN
     Dates: start: 20200711, end: 20200714
  10. ZINC SULFATE 220 MG [Concomitant]
     Dates: start: 20200630, end: 20200714
  11. ZOSYN 3.375 G [Concomitant]
     Dates: start: 20200709, end: 20200713

REACTIONS (1)
  - Liver function test increased [None]

NARRATIVE: CASE EVENT DATE: 20200713
